FAERS Safety Report 7916912-8 (Version None)
Quarter: 2011Q4

REPORT INFORMATION
  Report Type: 
  Country: None (occurrence: None)
  Receive Date: 20111116
  Receipt Date: 20111109
  Transmission Date: 20120403
  Serious: Yes (Other)
  Sender: FDA-Public Use
  Company Number: US-JNJFOC-20111104483

PATIENT
  Sex: Female

DRUGS (4)
  1. SYNTHROID [Concomitant]
     Route: 048
  2. SIMPONI [Suspect]
     Indication: RHEUMATOID ARTHRITIS
     Route: 058
     Dates: start: 20100101
  3. LISINOPRIL [Concomitant]
     Indication: HYPERTENSION
     Route: 048
  4. PLAQUENIL [Concomitant]
     Indication: RHEUMATOID ARTHRITIS
     Route: 048

REACTIONS (5)
  - DRUG DOSE OMISSION [None]
  - DEVICE FAILURE [None]
  - HEART RATE IRREGULAR [None]
  - CARDIAC VALVE DISEASE [None]
  - CHEST PAIN [None]
